FAERS Safety Report 5067946-5 (Version None)
Quarter: 2006Q3

REPORT INFORMATION
  Report Type: 
  Country: None (occurrence: None)
  Receive Date: 20060802
  Receipt Date: 20060510
  Transmission Date: 20061208
  Serious: Yes (Other)
  Sender: FDA-Public Use
  Company Number: US-AVENTIS-200614280US

PATIENT
  Sex: Female

DRUGS (8)
  1. LANTUS [Suspect]
     Indication: DIABETES MELLITUS NON-INSULIN-DEPENDENT
     Dosage: DOSE: UNK
     Dates: start: 20060423, end: 20060427
  2. LANTUS [Suspect]
     Dosage: DOSE: UNK
  3. COREG [Concomitant]
  4. GLIPIZIDE [Concomitant]
     Dosage: DOSE: ONE
  5. NEXIUM [Concomitant]
     Indication: DYSPEPSIA
  6. CRESTOR [Concomitant]
     Dosage: DOSE: ONE
  7. ASPIRIN [Concomitant]
     Dosage: DOSE: ONE BABY ASPIRIR
  8. DIURETICS [Concomitant]

REACTIONS (13)
  - AKINESIA [None]
  - ASTHENIA [None]
  - BALANCE DISORDER [None]
  - BLOOD GLUCOSE INCREASED [None]
  - DIARRHOEA [None]
  - FALL [None]
  - FATIGUE [None]
  - FEELING ABNORMAL [None]
  - GAIT DISTURBANCE [None]
  - HYPOGLYCAEMIC COMA [None]
  - PHARMACEUTICAL PRODUCT COMPLAINT [None]
  - POOR QUALITY DRUG ADMINISTERED [None]
  - VOMITING [None]
